FAERS Safety Report 8405815-0 (Version None)
Quarter: 2012Q2

REPORT INFORMATION
  Report Type: 
  Country: None (occurrence: None)
  Receive Date: 20120604
  Receipt Date: 20120529
  Transmission Date: 20120825
  Serious: No
  Sender: FDA-Public Use
  Company Number: US-PFIZER INC-2012128917

PATIENT
  Sex: Male

DRUGS (3)
  1. GLUCOTROL XL [Suspect]
     Dosage: UNK
  2. ACCUPRIL [Suspect]
     Dosage: UNK
  3. NORVASC [Suspect]
     Dosage: UNK

REACTIONS (1)
  - BRONCHITIS [None]
